FAERS Safety Report 15758411 (Version 3)
Quarter: 2021Q3

REPORT INFORMATION
  Report Type: Report from Study
  Country: JP (occurrence: JP)
  Receive Date: 20181225
  Receipt Date: 20210701
  Transmission Date: 20211014
  Serious: Yes (Death)
  Sender: FDA-Public Use
  Company Number: JP-BAUSCH-BL-2018-032012

PATIENT
  Age: 74 Year
  Sex: Male

DRUGS (7)
  1. LIVALO [Concomitant]
     Active Substance: PITAVASTATIN CALCIUM
     Indication: HYPERLIPIDAEMIA
     Route: 048
     Dates: end: 20170725
  2. RACOL [Concomitant]
     Active Substance: AMINO ACIDS\DEXTROSE\ELECTROLYTES NOS
     Indication: MALNUTRITION
     Route: 048
     Dates: start: 20180612, end: 20181105
  3. DEPAKENE?R [Concomitant]
     Active Substance: VALPROATE SODIUM
     Indication: IRRITABILITY
     Route: 048
     Dates: start: 20140520, end: 20171010
  4. MUCOSOLVAN L [Concomitant]
     Active Substance: AMBROXOL HYDROCHLORIDE
     Indication: COUGH VARIANT ASTHMA
     Route: 048
     Dates: start: 20151013, end: 20181105
  5. JUVELA N [Concomitant]
     Active Substance: TOCOPHERYL NICOTINATE, D-.ALPHA.
     Indication: HYPERLIPIDAEMIA
     Route: 048
     Dates: end: 20170725
  6. ALLELOCK [Concomitant]
     Active Substance: OLOPATADINE HYDROCHLORIDE
     Indication: COUGH VARIANT ASTHMA
     Route: 048
     Dates: start: 20150616, end: 20181105
  7. CHOREAZINE [Suspect]
     Active Substance: TETRABENAZINE
     Indication: HUNTINGTON^S DISEASE
     Route: 048
     Dates: start: 20170208, end: 20181105

REACTIONS (1)
  - Death [Fatal]

NARRATIVE: CASE EVENT DATE: 20181105
